FAERS Safety Report 5418019-0 (Version None)
Quarter: 2007Q3

REPORT INFORMATION
  Report Type: 
  Country: None (occurrence: None)
  Receive Date: 20070817
  Receipt Date: 20060928
  Transmission Date: 20080115
  Serious: No
  Sender: FDA-Public Use
  Company Number: A0621464A

PATIENT
  Sex: Female

DRUGS (1)
  1. BEXXAR [Suspect]
     Indication: NON-HODGKIN'S LYMPHOMA
     Route: 042
     Dates: start: 20060912, end: 20060921

REACTIONS (2)
  - DIZZINESS [None]
  - DYSPNOEA [None]
